FAERS Safety Report 18458948 (Version 1)
Quarter: 2020Q4

REPORT INFORMATION
  Report Type: Spontaneous
  Country: US (occurrence: US)
  Receive Date: 20201103
  Receipt Date: 20201103
  Transmission Date: 20210114
  Serious: Yes (Life-Threatening, Other)
  Sender: FDA-Public Use
  Company Number: US-ASTRAZENECA-2020SF41861

PATIENT
  Age: 40 Year

DRUGS (2)
  1. TICAGRELOR. [Suspect]
     Active Substance: TICAGRELOR
     Indication: ANTIPLATELET THERAPY
     Route: 048
  2. ASPIRIN. [Suspect]
     Active Substance: ASPIRIN
     Indication: ANTIPLATELET THERAPY

REACTIONS (6)
  - Drug intolerance [Unknown]
  - Vascular stent thrombosis [Recovered/Resolved]
  - Hemiparesis [Recovered/Resolved]
  - Cerebral artery occlusion [Recovered/Resolved]
  - Treatment noncompliance [Unknown]
  - Anticoagulation drug level below therapeutic [Unknown]
